FAERS Safety Report 9153887 (Version 1)
Quarter: 2013Q1

REPORT INFORMATION
  Report Type: Spontaneous
  Country: US (occurrence: None)
  Receive Date: 20130308
  Receipt Date: 20130308
  Transmission Date: 20140127
  Serious: Yes (Life-Threatening, Hospitalization, Disabling)
  Sender: FDA-Public Use
  Company Number: None

PATIENT
  Sex: Female
  Weight: 70.31 kg

DRUGS (2)
  1. ZYPREXA 10MG [Suspect]
     Indication: OBSESSIVE-COMPULSIVE DISORDER
     Route: 050
     Dates: start: 20011022, end: 20020219
  2. ZYPREXA [Suspect]
     Indication: OBSESSIVE-COMPULSIVE DISORDER
     Route: 050
     Dates: start: 20010315, end: 20011022

REACTIONS (6)
  - Diabetes mellitus [None]
  - Weight increased [None]
  - Renal failure [None]
  - Neuropathy peripheral [None]
  - Economic problem [None]
  - Loss of employment [None]
